FAERS Safety Report 9930671 (Version 1)
Quarter: 2014Q1

REPORT INFORMATION
  Report Type: Spontaneous
  Country: US (occurrence: US)
  Receive Date: 20140227
  Receipt Date: 20140227
  Transmission Date: 20141002
  Serious: No
  Sender: FDA-Public Use
  Company Number: US-AMGEN-USASP2014000083

PATIENT
  Age: 51 Year
  Sex: Male
  Weight: 97.96 kg

DRUGS (6)
  1. ENBREL [Suspect]
     Indication: PRODUCT USED FOR UNKNOWN INDICATION
     Dosage: 50 MG, QWK
     Route: 058
  2. AMLODIPINE [Concomitant]
     Dosage: 10 MG, UNK
  3. MELOXICAM [Concomitant]
     Dosage: 7.5/5 ML,
  4. NEXIUM                             /01479302/ [Concomitant]
     Dosage: 20 MG, UNK
  5. HYDROCHLOROTH [Concomitant]
     Dosage: 12.5 MG, UNK
  6. BABY ASPIRIN [Concomitant]
     Dosage: 81 MG, UNK

REACTIONS (1)
  - Gastrooesophageal reflux disease [Unknown]
